FAERS Safety Report 5135098-9 (Version None)
Quarter: 2006Q4

REPORT INFORMATION
  Report Type: 
  Country: None (occurrence: None)
  Receive Date: 20060831
  Receipt Date: 20060526
  Transmission Date: 20070319
  Serious: No
  Sender: FDA-Public Use
  Company Number: 2006-BP-05968BP

PATIENT
  Age: 64 Year
  Sex: Female

DRUGS (5)
  1. SPIRIVA [Suspect]
     Indication: CHRONIC OBSTRUCTIVE PULMONARY DISEASE
     Dosage: 18 MCG (18 MCG,QD),IH
     Dates: start: 20050501
  2. ADVAIR (SERETIDE /01420901/) [Suspect]
     Indication: CHRONIC OBSTRUCTIVE PULMONARY DISEASE
     Dates: start: 20050501
  3. LOTENSIN [Concomitant]
  4. NORVASC [Concomitant]
  5. SYNTHROID [Concomitant]

REACTIONS (2)
  - MUSCLE SPASMS [None]
  - WEIGHT INCREASED [None]
